FAERS Safety Report 19122671 (Version 1)
Quarter: 2021Q2

REPORT INFORMATION
  Report Type: Spontaneous
  Country: IT (occurrence: IT)
  Receive Date: 20210412
  Receipt Date: 20210412
  Transmission Date: 20210717
  Serious: Yes (Death, Hospitalization, Other)
  Sender: FDA-Public Use
  Company Number: IT-PFIZER INC-2021361178

PATIENT
  Age: 69 Year
  Sex: Male

DRUGS (2)
  1. BLEOMYCIN [Suspect]
     Active Substance: BLEOMYCIN SULFATE
     Indication: CHEMOTHERAPY
     Dosage: 10 MG/M2, DAILY
     Route: 042
     Dates: start: 19791017, end: 19791018
  2. METHOTREXATE. [Suspect]
     Active Substance: METHOTREXATE
     Indication: CHEMOTHERAPY
     Dosage: 20 MG/M2, DAILY
     Dates: start: 19791019, end: 19791028

REACTIONS (18)
  - Erythema [Unknown]
  - Rash vesicular [Unknown]
  - Blood urea increased [Unknown]
  - Liver function test increased [Unknown]
  - Acute pulmonary oedema [Fatal]
  - Supraventricular extrasystoles [Unknown]
  - Hypotension [Unknown]
  - Toxicity to various agents [Unknown]
  - Altered state of consciousness [Unknown]
  - Mouth ulceration [Unknown]
  - Intestinal obstruction [Unknown]
  - Thrombocytopenia [Unknown]
  - Abdominal pain [Unknown]
  - Dysphagia [Unknown]
  - Arrhythmia [Unknown]
  - Hyperpyrexia [Unknown]
  - Leukopenia [Unknown]
  - Asthenia [Unknown]

NARRATIVE: CASE EVENT DATE: 197910
